FAERS Safety Report 4375796-8 (Version None)
Quarter: 2004Q2

REPORT INFORMATION
  Report Type: 
  Country: None (occurrence: None)
  Receive Date: 20040609
  Receipt Date: 20040609
  Transmission Date: 20050107
  Serious: Yes (Death)
  Sender: FDA-Public Use
  Company Number: None

PATIENT
  Age: 74 Year
  Sex: Female
  Weight: 59.4212 kg

DRUGS (6)
  1. PACLITAXEL [Suspect]
     Indication: OVARIAN CANCER
     Dosage: 230 MG / D1 / IV
     Route: 042
     Dates: start: 20040225
  2. PLATINOL [Suspect]
     Indication: OVARIAN CANCER
     Dosage: 128 MG / D2 / IP
     Route: 050
     Dates: start: 20040226
  3. ANZEMET [Concomitant]
  4. DECADRON [Concomitant]
  5. BENADRYL [Concomitant]
  6. PEPCID [Concomitant]

REACTIONS (1)
  - ILEUS [None]
